FAERS Safety Report 4811580-6 (Version None)
Quarter: 2005Q4

REPORT INFORMATION
  Report Type: 
  Country: None (occurrence: None)
  Receive Date: 20051027
  Receipt Date: 20051020
  Transmission Date: 20060501
  Serious: Yes (Hospitalization)
  Sender: FDA-Public Use
  Company Number: DK-MERCK-0510DNK00015

PATIENT
  Age: 55 Year
  Sex: Male

DRUGS (10)
  1. VIOXX [Suspect]
     Indication: OSTEOARTHRITIS
     Route: 048
     Dates: start: 20020213, end: 20040809
  2. TRANDOLAPRIL [Concomitant]
     Route: 048
  3. ACETAMINOPHEN [Concomitant]
     Route: 048
  4. SIMVASTATIN [Concomitant]
     Route: 048
  5. KETOBEMIDONE HYDROCHLORIDE [Concomitant]
     Route: 048
  6. METOPROLOL TARTRATE [Concomitant]
     Route: 048
  7. ZOPICLONE [Concomitant]
     Route: 048
  8. TRAMADOL HYDROCHLORIDE [Concomitant]
     Route: 048
  9. AMLODIPINE BESYLATE [Concomitant]
     Route: 048
  10. GLUCOSAMINE [Concomitant]
     Route: 065

REACTIONS (1)
  - ACUTE MYOCARDIAL INFARCTION [None]
